FAERS Safety Report 25239989 (Version 2)
Quarter: 2025Q4

REPORT INFORMATION
  Report Type: Report from Study
  Country: US (occurrence: None)
  Receive Date: 20250425
  Receipt Date: 20251029
  Transmission Date: 20260118
  Serious: Yes (Other)
  Sender: UCB
  Company Number: US-UCBSA-2025024208

PATIENT
  Weight: 36.1 kg

DRUGS (1)
  1. FENFLURAMINE [Suspect]
     Active Substance: FENFLURAMINE
     Indication: Lennox-Gastaut syndrome
     Dosage: 3 MILLILITER, 2X/DAY (BID)

REACTIONS (3)
  - Tardive dyskinesia [Not Recovered/Not Resolved]
  - Sleep terror [Not Recovered/Not Resolved]
  - Diarrhoea [Not Recovered/Not Resolved]
